FAERS Safety Report 19104512 (Version 3)
Quarter: 2022Q1

REPORT INFORMATION
  Report Type: Report from Study
  Country: FR (occurrence: FR)
  Receive Date: 20210407
  Receipt Date: 20220214
  Transmission Date: 20220423
  Serious: Yes (Hospitalization, Other)
  Sender: FDA-Public Use
  Company Number: FR-BRISTOL-MYERS SQUIBB COMPANY-BMS-2021-030978

PATIENT
  Age: 71 Year
  Sex: Male

DRUGS (3)
  1. NIVOLUMAB [Suspect]
     Active Substance: NIVOLUMAB
     Indication: Non-small cell lung cancer
     Dosage: UNK
     Route: 065
  2. NIVOLUMAB [Suspect]
     Active Substance: NIVOLUMAB
     Dosage: 189 MILLIGRAM, Q2WK
     Route: 042
     Dates: end: 20210312
  3. TINZAPARIN SODIUM [Concomitant]
     Active Substance: TINZAPARIN SODIUM
     Indication: Product used for unknown indication
     Route: 065

REACTIONS (5)
  - Atrial fibrillation [Recovered/Resolved]
  - Oedema peripheral [Recovering/Resolving]
  - Dyspnoea [Not Recovered/Not Resolved]
  - Pleural effusion [Unknown]
  - Prescribed underdose [Recovered/Resolved]

NARRATIVE: CASE EVENT DATE: 20210310
